FAERS Safety Report 19799341 (Version 1)
Quarter: 2021Q3

REPORT INFORMATION
  Report Type: Spontaneous
  Country: IL (occurrence: IL)
  Receive Date: 20210907
  Receipt Date: 20210907
  Transmission Date: 20211014
  Serious: Yes (Hospitalization, Other)
  Sender: FDA-Public Use
  Company Number: IL-ASTRAZENECA-2021A714953

PATIENT
  Age: 22 Year
  Sex: Female

DRUGS (8)
  1. TOZINAMERAN. [Suspect]
     Active Substance: TOZINAMERAN
     Indication: COVID-19 IMMUNISATION
     Dosage: 1 DOSAGE FORM, ONCE1.0DF ONCE/SINGLE ADMINISTRATION
     Dates: start: 20210411, end: 20210411
  2. YASMIN [Concomitant]
     Active Substance: DROSPIRENONE\ETHINYL ESTRADIOL
     Indication: CONTRACEPTION
     Dosage: UNK
  3. TINIDAZOLE. [Suspect]
     Active Substance: TINIDAZOLE
     Indication: HELICOBACTER INFECTION
     Dosage: UNK
  4. NEXIUM [Suspect]
     Active Substance: ESOMEPRAZOLE MAGNESIUM
     Indication: HELICOBACTER INFECTION
     Dosage: UNK
  5. ARCOXIA [Suspect]
     Active Substance: ETORICOXIB
     Indication: ARTHRALGIA
     Dosage: UNK
  6. TOZINAMERAN. [Suspect]
     Active Substance: TOZINAMERAN
     Indication: COVID-19 IMMUNISATION
     Dosage: 1 DOSAGE FORM, 1/DAY1.0DF ONCE/SINGLE ADMINISTRATION
     Dates: start: 20210321, end: 20210321
  7. MOXYPEN [AMOXICILLIN SODIUM] [Suspect]
     Active Substance: AMOXICILLIN SODIUM
     Indication: HELICOBACTER INFECTION
     Dosage: UNK
  8. CLARITHROMYCIN. [Suspect]
     Active Substance: CLARITHROMYCIN
     Indication: HELICOBACTER INFECTION
     Dosage: UNK

REACTIONS (8)
  - Vasculitis [Unknown]
  - Urinary tract infection [Unknown]
  - Lymphadenopathy [Unknown]
  - Abdominal tenderness [Unknown]
  - Rash [Unknown]
  - Synovitis [Unknown]
  - Mouth haemorrhage [Unknown]
  - Arthralgia [Unknown]
